FAERS Safety Report 5677365-6 (Version None)
Quarter: 2008Q1

REPORT INFORMATION
  Report Type: 
  Country: None (occurrence: None)
  Receive Date: 20080320
  Receipt Date: 20080320
  Transmission Date: 20080703
  Serious: Yes (Hospitalization)
  Sender: FDA-Public Use
  Company Number: None

PATIENT
  Age: 77 Year
  Sex: Male
  Weight: 73.4827 kg

DRUGS (1)
  1. RANIBIZUMAB GENENTECH [Suspect]
     Indication: MACULAR DEGENERATION
     Dosage: 0.5 MG ONCE A MONTH OPHTHALMIC
     Route: 047
     Dates: start: 20071022, end: 20080219

REACTIONS (1)
  - PNEUMONIA [None]
